FAERS Safety Report 18701896 (Version 5)
Quarter: 2021Q1

REPORT INFORMATION
  Report Type: Report from Study
  Country: US (occurrence: US)
  Receive Date: 20210105
  Receipt Date: 20210330
  Transmission Date: 20210419
  Serious: Yes (Life-Threatening, Hospitalization, Other)
  Sender: FDA-Public Use
  Company Number: US-GILEAD-2020-0509467

PATIENT
  Age: 55 Year
  Sex: Male
  Weight: 158.73 kg

DRUGS (10)
  1. VELETRI [Concomitant]
     Active Substance: EPOPROSTENOL
  2. ADCIRCA [Concomitant]
     Active Substance: TADALAFIL
  3. AMBRISENTAN [Suspect]
     Active Substance: AMBRISENTAN
     Indication: PULMONARY ARTERIAL HYPERTENSION
     Dosage: 10 MG, QD
     Route: 048
     Dates: start: 20191203
  4. REMODULIN [Suspect]
     Active Substance: TREPROSTINIL
     Indication: PULMONARY ARTERIAL HYPERTENSION
     Dosage: UNK
     Route: 058
     Dates: start: 20201010
  5. REMODULIN [Suspect]
     Active Substance: TREPROSTINIL
     Dosage: 37.7 NG/KG/MIN
     Route: 058
     Dates: start: 2020, end: 202101
  6. TADALAFIL. [Concomitant]
     Active Substance: TADALAFIL
  7. REMODULIN [Suspect]
     Active Substance: TREPROSTINIL
     Dosage: 35.7 NG/KG/MIN
     Route: 058
     Dates: start: 2020
  8. UPTRAVI [Concomitant]
     Active Substance: SELEXIPAG
  9. AMBRISENTAN [Suspect]
     Active Substance: AMBRISENTAN
     Indication: PULMONARY CAPILLARY HAEMANGIOMATOSIS
     Dosage: 5 MG, QD
     Route: 048
  10. ELIQUIS [Concomitant]
     Active Substance: APIXABAN

REACTIONS (18)
  - Fluid overload [Not Recovered/Not Resolved]
  - Hypoxia [Recovered/Resolved]
  - Weight increased [Unknown]
  - Colorectal cancer [Unknown]
  - Pulmonary capillary haemangiomatosis [Not Recovered/Not Resolved]
  - Tachycardia [Not Recovered/Not Resolved]
  - Infusion site warmth [Unknown]
  - Infusion site swelling [Unknown]
  - Pulmonary veno-occlusive disease [Not Recovered/Not Resolved]
  - Infusion site pain [Unknown]
  - Intra-abdominal fluid collection [Not Recovered/Not Resolved]
  - Headache [Unknown]
  - Infusion site discharge [Unknown]
  - Dyspnoea [Recovered/Resolved]
  - Oedema peripheral [Not Recovered/Not Resolved]
  - Scar [Unknown]
  - Blood pressure decreased [Unknown]
  - Infusion site erythema [Unknown]

NARRATIVE: CASE EVENT DATE: 2020
